FAERS Safety Report 8255273-4 (Version None)
Quarter: 2012Q2

REPORT INFORMATION
  Report Type: 
  Country: None (occurrence: None)
  Receive Date: 20120403
  Receipt Date: 20120326
  Transmission Date: 20120825
  Serious: Yes (Hospitalization)
  Sender: FDA-Public Use
  Company Number: ZA-JNJFOC-20120313376

PATIENT
  Sex: Female
  Weight: 71.9 kg

DRUGS (13)
  1. MEROPENEM [Concomitant]
     Indication: ANTIBIOTIC THERAPY
     Dosage: 1 SACHET TWICE A DAY AS REQUIRED
     Route: 065
     Dates: start: 20110909, end: 20110913
  2. CIPROFLOXACIN [Concomitant]
     Indication: ANTIBIOTIC THERAPY
     Dosage: 1 SACHET TWICE A DAY AS REQUIRED
     Route: 065
     Dates: start: 20110908, end: 20110909
  3. VELCADE [Concomitant]
     Indication: MULTIPLE MYELOMA
     Route: 065
     Dates: start: 20110830, end: 20111020
  4. CYCLOPHOSPHAMIDE [Concomitant]
     Indication: MULTIPLE MYELOMA
     Route: 065
     Dates: start: 20110830, end: 20111020
  5. TRAMADOL HYDROCHLORIDE/ACETAMINOPHEN [Suspect]
     Indication: PAIN
     Dosage: 1 TO 2 TABLETS 3 TIMES A DAY AS REQUIRED.
     Route: 048
     Dates: start: 20110830
  6. DEXAMETHASONE [Concomitant]
     Indication: MULTIPLE MYELOMA
     Dosage: D1,4,8,11,21
     Route: 065
     Dates: start: 20110830, end: 20111020
  7. ZOMETA [Concomitant]
     Indication: HYPERCALCAEMIA
     Route: 065
     Dates: start: 20110830, end: 20111010
  8. MAXOLON [Concomitant]
     Indication: VOMITING
     Route: 065
     Dates: start: 20110830
  9. MOVIPREP [Concomitant]
     Indication: CONSTIPATION
     Dosage: 1 SACHET TWICE A DAY AS REQUIRED
     Route: 065
     Dates: start: 20110830
  10. MAXOLON [Concomitant]
     Indication: NAUSEA
     Route: 065
     Dates: start: 20110830
  11. ALLOPURINOL [Concomitant]
     Indication: PROPHYLAXIS
     Route: 065
     Dates: start: 20110830, end: 20110912
  12. NEXIUM [Concomitant]
     Indication: GASTROINTESTINAL DISORDER
     Route: 065
     Dates: start: 20110830
  13. NYSTACID [Concomitant]
     Indication: ORAL CANDIDIASIS
     Route: 048
     Dates: start: 20110830

REACTIONS (1)
  - URINARY TRACT INFECTION [None]
